FAERS Safety Report 20716395 (Version 1)
Quarter: 2022Q2

REPORT INFORMATION
  Report Type: Spontaneous
  Country: GB (occurrence: GB)
  Receive Date: 20220416
  Receipt Date: 20220416
  Transmission Date: 20220720
  Serious: Yes (Other)
  Sender: FDA-Public Use
  Company Number: None

PATIENT
  Age: 78 Year
  Sex: Male
  Weight: 82 kg

DRUGS (10)
  1. FINASTERIDE [Suspect]
     Active Substance: FINASTERIDE
     Indication: Ill-defined disorder
     Dates: start: 20220401
  2. FINASTERIDE [Suspect]
     Active Substance: FINASTERIDE
     Route: 048
     Dates: start: 20210608
  3. FINASTERIDE [Concomitant]
     Active Substance: FINASTERIDE
     Indication: Ill-defined disorder
     Dates: start: 20210505, end: 20220401
  4. FINASTERIDE [Concomitant]
     Active Substance: FINASTERIDE
     Indication: Prostatomegaly
  5. AMLODIPINE [Concomitant]
     Active Substance: AMLODIPINE BESYLATE
     Indication: Ill-defined disorder
     Dates: start: 20200103
  6. SOLIFENACIN [Concomitant]
     Active Substance: SOLIFENACIN
     Indication: Ill-defined disorder
     Dates: start: 20220401
  7. SOLIFENACIN [Concomitant]
     Active Substance: SOLIFENACIN
     Indication: Bladder disorder
  8. ATORVASTATIN [Concomitant]
     Active Substance: ATORVASTATIN
     Indication: Ill-defined disorder
     Dosage: EACH NIGHT
     Dates: start: 20200103
  9. CLOPIDOGREL [Concomitant]
     Active Substance: CLOPIDOGREL BISULFATE
     Indication: Ill-defined disorder
     Dosage: EACH MORNING
     Dates: start: 20200103
  10. TAMSULOSIN HYDROCHLORIDE [Concomitant]
     Active Substance: TAMSULOSIN HYDROCHLORIDE
     Indication: Ill-defined disorder
     Dates: start: 20211217

REACTIONS (3)
  - Palpitations [Recovered/Resolved]
  - Palpitations [Recovered/Resolved]
  - Palpitations [Recovered/Resolved]

NARRATIVE: CASE EVENT DATE: 20211207
